FAERS Safety Report 4790450-6 (Version None)
Quarter: 2005Q4

REPORT INFORMATION
  Report Type: 
  Country: None (occurrence: None)
  Receive Date: 20051005
  Receipt Date: 20050919
  Transmission Date: 20060501
  Serious: Yes (Death, Hospitalization)
  Sender: FDA-Public Use
  Company Number: US_0504116338

PATIENT
  Age: 45 Year
  Sex: Female

DRUGS (3)
  1. ZYPREXA [Suspect]
     Indication: ANXIETY
     Dosage: 15 MG
     Dates: start: 20000424
  2. DYAZIDE [Concomitant]
  3. MAXZIDE [Concomitant]

REACTIONS (4)
  - BLOOD POTASSIUM DECREASED [None]
  - CHEST PAIN [None]
  - DIABETES MELLITUS [None]
  - GLYCOSYLATED HAEMOGLOBIN INCREASED [None]
